FAERS Safety Report 4888046-0 (Version None)
Quarter: 2006Q1

REPORT INFORMATION
  Report Type: 
  Country: None (occurrence: None)
  Receive Date: 20060119
  Receipt Date: 20060111
  Transmission Date: 20060701
  Serious: Yes (Other)
  Sender: FDA-Public Use
  Company Number: 2006006874

PATIENT
  Age: 53 Year
  Sex: Female
  Weight: 47.6277 kg

DRUGS (2)
  1. XANAX [Suspect]
     Indication: ANXIETY
     Dosage: 6 MG (2 MG, 3 IN 1 D)
  2. WELLBUTRIN XL [Concomitant]

REACTIONS (5)
  - AMNESIA [None]
  - BLOOD PRESSURE INCREASED [None]
  - ECONOMIC PROBLEM [None]
  - HEPATITIS C [None]
  - TREATMENT NONCOMPLIANCE [None]
